FAERS Safety Report 16511452 (Version 1)
Quarter: 2019Q3

REPORT INFORMATION
  Report Type: Report from Study
  Country: MX (occurrence: MX)
  Receive Date: 20190701
  Receipt Date: 20190701
  Transmission Date: 20191004
  Serious: Yes (Other)
  Sender: FDA-Public Use
  Company Number: PHHY2019MX150821

PATIENT
  Sex: Female
  Weight: 59 kg

DRUGS (1)
  1. GALVUS MET [Suspect]
     Active Substance: METFORMIN HYDROCHLORIDE\VILDAGLIPTIN
     Indication: BLOOD GLUCOSE INCREASED
     Dosage: 2 DF (METFORMIN 850 MG,VILDAGLIPTIN 50 MG), BID
     Route: 048

REACTIONS (4)
  - Pharyngitis [Unknown]
  - Incorrect dose administered [Unknown]
  - Pharyngeal erythema [Unknown]
  - Pyrexia [Unknown]
